FAERS Safety Report 11077381 (Version 2)
Quarter: 2015Q2

REPORT INFORMATION
  Report Type: Spontaneous
  Country: US (occurrence: US)
  Receive Date: 20150430
  Receipt Date: 20150526
  Transmission Date: 20150821
  Serious: No
  Sender: FDA-Public Use
  Company Number: US-JNJFOC-20130604973

PATIENT
  Age: 85 Year
  Sex: Male
  Weight: 71.22 kg

DRUGS (7)
  1. GALANTAMINE HBR [Suspect]
     Active Substance: GALANTAMINE HYDROBROMIDE
     Indication: MEMORY IMPAIRMENT
     Route: 048
     Dates: start: 201302
  2. FINASTERIDE. [Concomitant]
     Active Substance: FINASTERIDE
     Indication: PROSTATIC DISORDER
     Route: 048
  3. GENFIBROZILE [Concomitant]
     Indication: BLOOD CHOLESTEROL INCREASED
     Route: 048
  4. SALMON OIL [Concomitant]
     Active Substance: FISH OIL
  5. TRAVATAN [Concomitant]
     Active Substance: TRAVOPROST
     Indication: GLAUCOMA
  6. GALANTAMINE HBR [Suspect]
     Active Substance: GALANTAMINE HYDROBROMIDE
     Indication: MEMORY IMPAIRMENT
     Route: 048
     Dates: end: 201304
  7. VITAMIN [Concomitant]
     Active Substance: VITAMINS

REACTIONS (3)
  - Retching [Recovered/Resolved]
  - Vomiting [Recovered/Resolved]
  - Nausea [Recovered/Resolved]

NARRATIVE: CASE EVENT DATE: 201304
